FAERS Safety Report 8738724 (Version 2)
Quarter: 2012Q4

REPORT INFORMATION
  Report Type: 
  Country: US (occurrence: US)
  Receive Date: 20120823
  Receipt Date: 20120928
  Transmission Date: 20130627
  Serious: Yes (Other)
  Sender: FDA-Public Use
  Company Number: US-PFIZER INC-2012203447

PATIENT
  Age: 36 Year
  Sex: Female

DRUGS (1)
  1. EPIPEN [Suspect]
     Dosage: UNK

REACTIONS (4)
  - Accidental exposure to product [Unknown]
  - Hypoaesthesia [Unknown]
  - Pain [Unknown]
  - Contusion [Unknown]
